FAERS Safety Report 7472737-1 (Version None)
Quarter: 2011Q2

REPORT INFORMATION
  Report Type: 
  Country: None (occurrence: None)
  Receive Date: 20110502
  Receipt Date: 20110421
  Transmission Date: 20111010
  Serious: Yes (Hospitalization, Other)
  Sender: FDA-Public Use
  Company Number: 2010SP004576

PATIENT
  Age: 18 Year
  Sex: Female
  Weight: 99.7913 kg

DRUGS (3)
  1. AZITHROMYCIN [Suspect]
     Indication: CHLAMYDIAL INFECTION
  2. NUVARING [Suspect]
     Indication: CONTRACEPTION
     Dates: start: 20081101, end: 20090101
  3. FLAGYL [Suspect]
     Indication: VAGINITIS BACTERIAL

REACTIONS (11)
  - PULMONARY EMBOLISM [None]
  - DEEP VEIN THROMBOSIS [None]
  - SINUSITIS [None]
  - TREATMENT NONCOMPLIANCE [None]
  - LOSS OF CONSCIOUSNESS [None]
  - PREGNANCY WITH CONTRACEPTIVE DEVICE [None]
  - VAGINITIS BACTERIAL [None]
  - INTRA-UTERINE DEATH [None]
  - DRUG EXPOSURE DURING PREGNANCY [None]
  - DYSPNOEA [None]
  - ABORTION MISSED [None]
